FAERS Safety Report 8854247 (Version 4)
Quarter: 2013Q1

REPORT INFORMATION
  Report Type: Spontaneous
  Country: US (occurrence: US)
  Receive Date: 20121022
  Receipt Date: 20130311
  Transmission Date: 20140127
  Serious: No
  Sender: FDA-Public Use
  Company Number: US-PFIZER INC-2012262469

PATIENT
  Age: 60 Year
  Sex: Male
  Weight: 77.1 kg

DRUGS (3)
  1. EFFEXOR XR [Suspect]
     Indication: DEPRESSION
     Dosage: 225 MG, DAILY
  2. EFFEXOR XR [Suspect]
     Indication: ANXIETY
     Dosage: 75 MG, UNK
  3. ALPRAZOLAM [Suspect]
     Indication: INSOMNIA
     Dosage: 0.25 MG, DAILY
     Dates: start: 201210, end: 201210

REACTIONS (3)
  - Drug ineffective [Unknown]
  - Insomnia [Not Recovered/Not Resolved]
  - Drug ineffective for unapproved indication [Unknown]
